FAERS Safety Report 23635299 (Version 4)
Quarter: 2024Q3

REPORT INFORMATION
  Report Type: Spontaneous
  Country: CH (occurrence: CH)
  Receive Date: 20240315
  Receipt Date: 20240720
  Transmission Date: 20241017
  Serious: Yes (Other)
  Sender: NOVARTIS
  Company Number: CH-002147023-NVSC2022CH099321

PATIENT
  Sex: Male

DRUGS (12)
  1. LUTATHERA [Suspect]
     Active Substance: LUTETIUM OXODOTREOTIDE LU-177
     Indication: Gastroenteropancreatic neuroendocrine tumour disease
     Dosage: 370 MBQ/ML
     Route: 065
     Dates: start: 20170926
  2. LUTATHERA [Suspect]
     Active Substance: LUTETIUM OXODOTREOTIDE LU-177
     Dosage: UNK, (2ND DOSE)
     Route: 065
     Dates: start: 20171121
  3. LUTATHERA [Suspect]
     Active Substance: LUTETIUM OXODOTREOTIDE LU-177
     Dosage: UNK, (3RD DOSE)
     Route: 065
     Dates: start: 20180116
  4. LUTATHERA [Suspect]
     Active Substance: LUTETIUM OXODOTREOTIDE LU-177
     Dosage: UNK, (4TH DOSE)
     Route: 065
     Dates: start: 20180316
  5. LUTATHERA [Suspect]
     Active Substance: LUTETIUM OXODOTREOTIDE LU-177
     Dosage: UNK, (5TH DOSE)
     Route: 065
     Dates: start: 20220309
  6. LUTATHERA [Suspect]
     Active Substance: LUTETIUM OXODOTREOTIDE LU-177
     Dosage: UNK (6TH DOSE)
     Route: 065
     Dates: start: 20220505, end: 20220505
  7. LUTATHERA [Suspect]
     Active Substance: LUTETIUM OXODOTREOTIDE LU-177
     Dosage: 7700 (UNITS: NOT REPORTED) (7TH DOSE)
     Route: 065
     Dates: start: 20220714
  8. LUTATHERA [Suspect]
     Active Substance: LUTETIUM OXODOTREOTIDE LU-177
     Dosage: UNK, (8TH DOSE)
     Route: 065
     Dates: start: 20230926
  9. LUTATHERA [Suspect]
     Active Substance: LUTETIUM OXODOTREOTIDE LU-177
     Dosage: UNK, (9TH DOSE)
     Route: 065
     Dates: start: 20240326
  10. LUTATHERA [Suspect]
     Active Substance: LUTETIUM OXODOTREOTIDE LU-177
     Dosage: UNK (10TH DOSE)
     Route: 065
     Dates: start: 20240530
  11. OXODOTREOTIDE [Suspect]
     Active Substance: OXODOTREOTIDE
     Indication: Product used for unknown indication
     Dosage: UNK
     Route: 042
     Dates: start: 20220505
  12. EDOTREOTIDE\LUTETIUM LU-177 [Suspect]
     Active Substance: EDOTREOTIDE\LUTETIUM LU-177
     Indication: Product used for unknown indication
     Dosage: 7700 (UNITS: NOT REPORTED)
     Route: 042
     Dates: start: 20220304

REACTIONS (3)
  - Malignant neoplasm progression [Recovering/Resolving]
  - Gastroenteropancreatic neuroendocrine tumour disease [Recovering/Resolving]
  - Off label use [Unknown]

NARRATIVE: CASE EVENT DATE: 20191201
